FAERS Safety Report 5513680-4 (Version None)
Quarter: 2007Q4

REPORT INFORMATION
  Report Type: 
  Country: None (occurrence: None)
  Receive Date: 20071108
  Receipt Date: 20071018
  Transmission Date: 20080405
  Serious: Yes (Disabling, Other)
  Sender: FDA-Public Use
  Company Number: FRPFM-S-20040137

PATIENT
  Age: 40 Year
  Sex: Female

DRUGS (1)
  1. NAVELBINE [Suspect]
     Indication: ACCIDENTAL EXPOSURE

REACTIONS (3)
  - ACCIDENTAL EXPOSURE [None]
  - LACRIMATION INCREASED [None]
  - ULCERATIVE KERATITIS [None]
